FAERS Safety Report 14993880 (Version 1)
Quarter: 2018Q2

REPORT INFORMATION
  Report Type: Spontaneous
  Country: DE (occurrence: DE)
  Receive Date: 20180611
  Receipt Date: 20180611
  Transmission Date: 20180711
  Serious: Yes (Hospitalization)
  Sender: FDA-Public Use
  Company Number: DE-TEVA-2018-DE-904733

PATIENT
  Age: 88 Year
  Sex: Female
  Weight: 60 kg

DRUGS (8)
  1. TORASEMIDE [Suspect]
     Active Substance: TORSEMIDE
     Dosage: 10 MG, 1-1-0-0
     Route: 065
  2. METOPROLOL. [Suspect]
     Active Substance: METOPROLOL
     Dosage: 47.5 MG, 0.5-0-0.5-0
     Route: 065
  3. NITRENDIPINE [Suspect]
     Active Substance: NITRENDIPINE
     Dosage: 20 MG, 1-0-0-1
     Route: 065
  4. ACETYLSALICYLSAEURE [Concomitant]
     Active Substance: ASPIRIN
     Dosage: 100 MG, 1-0-0-0
  5. VALSARTAN. [Suspect]
     Active Substance: VALSARTAN
     Dosage: 1-0-1-0
     Route: 065
  6. EBRANTIL [Suspect]
     Active Substance: URAPIDIL
     Dosage: 60 MG, 1-0-0-0
     Route: 065
  7. MAGNESIUM-BRAUSE [Concomitant]
     Dosage: 1-0-0-0
  8. LEVOTHYROXIN [Concomitant]
     Active Substance: LEVOTHYROXINE
     Dosage: 75 ?G, 1-0-0-0

REACTIONS (3)
  - Diarrhoea [Unknown]
  - Dehydration [Unknown]
  - Syncope [Unknown]
